FAERS Safety Report 4821275-0 (Version None)
Quarter: 2005Q4

REPORT INFORMATION
  Report Type: 
  Country: None (occurrence: None)
  Receive Date: 20051107
  Receipt Date: 20051025
  Transmission Date: 20060501
  Serious: Yes (Hospitalization)
  Sender: FDA-Public Use
  Company Number: PHRM2005FR02837

PATIENT
  Age: 58 Year
  Sex: Female

DRUGS (2)
  1. LEPONEX [Suspect]
     Indication: SCHIZOPHRENIA
     Dosage: 400MG, DAILY
     Route: 048
  2. SOLIAN [Concomitant]

REACTIONS (3)
  - HYPOGAMMAGLOBULINAEMIA [None]
  - LUNG DISORDER [None]
  - NASOPHARYNGITIS [None]
